FAERS Safety Report 7011752-9 (Version None)
Quarter: 2010Q3

REPORT INFORMATION
  Report Type: 
  Country: None (occurrence: None)
  Receive Date: 20100923
  Receipt Date: 20090529
  Transmission Date: 20110219
  Serious: No
  Sender: FDA-Public Use
  Company Number: US-WYE-H09549009

PATIENT
  Age: 58 Year
  Sex: Female

DRUGS (4)
  1. PREMARIN [Suspect]
     Indication: VULVOVAGINAL DRYNESS
     Route: 067
     Dates: start: 20070501
  2. MULTI-VITAMINS [Concomitant]
  3. ASPIRIN [Concomitant]
  4. FISH OIL, HYDROGENATED [Concomitant]

REACTIONS (5)
  - COCCYDYNIA [None]
  - CYSTITIS [None]
  - DRUG WITHDRAWAL SYNDROME [None]
  - HOT FLUSH [None]
  - MEMORY IMPAIRMENT [None]
